FAERS Safety Report 14631206 (Version 4)
Quarter: 2018Q2

REPORT INFORMATION
  Report Type: Spontaneous
  Country: FI (occurrence: FI)
  Receive Date: 20180313
  Receipt Date: 20180425
  Transmission Date: 20180711
  Serious: Yes (Other)
  Sender: FDA-Public Use
  Company Number: FI-ASTRAZENECA-2018SE30346

PATIENT
  Age: 72 Year
  Sex: Male

DRUGS (6)
  1. ROSUVASTATIN. [Concomitant]
     Active Substance: ROSUVASTATIN
     Dosage: 5MG ONCE A DAY
  2. RIVATRIL [Concomitant]
     Active Substance: CLONAZEPAM
     Dosage: 0.5, 1 DF, DAILY
  3. ASSASANTIN [Concomitant]
     Dosage: 1 BID
  4. PANACOD [Suspect]
     Active Substance: ACETAMINOPHEN\CODEINE PHOSPHATE
     Indication: PRODUCT USED FOR UNKNOWN INDICATION
     Dosage: 1-3 TABLETS PER DAY WHEN NEEDED
     Route: 065
  5. RHINOCORT [Suspect]
     Active Substance: BUDESONIDE
     Indication: PRODUCT USED FOR UNKNOWN INDICATION
     Dosage: 32?G/DOSE IN USE. DAILY DOSE IS 1-2 DOSES, 1-2 TIMES A DAY
     Route: 045
  6. DOXAL [Concomitant]
     Dosage: 25 1-2 AT NIGHT, WHEN NEEDED

REACTIONS (3)
  - Dehydration [Unknown]
  - Constipation [Unknown]
  - Peripheral swelling [Unknown]
